FAERS Safety Report 4898010-3 (Version None)
Quarter: 2006Q1

REPORT INFORMATION
  Report Type: 
  Country: None (occurrence: None)
  Receive Date: 20060201
  Receipt Date: 20060120
  Transmission Date: 20060701
  Serious: Yes (Other)
  Sender: FDA-Public Use
  Company Number: JP-ROCHE-433520

PATIENT
  Age: 76 Year
  Sex: Female

DRUGS (1)
  1. TAMIFLU [Suspect]
     Indication: INFLUENZA
     Route: 048
     Dates: start: 20060109, end: 20060113

REACTIONS (4)
  - ALANINE AMINOTRANSFERASE INCREASED [None]
  - ASPARTATE AMINOTRANSFERASE INCREASED [None]
  - BLOOD CREATINE PHOSPHOKINASE INCREASED [None]
  - BLOOD LACTATE DEHYDROGENASE INCREASED [None]
